FAERS Safety Report 9676208 (Version 1)
Quarter: 2013Q4

REPORT INFORMATION
  Report Type: Spontaneous
  Country: US (occurrence: None)
  Receive Date: 20131105
  Receipt Date: 20131105
  Transmission Date: 20140711
  Serious: Yes (Hospitalization)
  Sender: FDA-Public Use
  Company Number: 2013AP009407

PATIENT
  Sex: Male

DRUGS (14)
  1. RISPERIDONE TABLETS [Suspect]
  2. OLANZAPINE [Suspect]
  3. LORAZEPAM [Suspect]
     Indication: CATATONIA
  4. AMANTADINE [Suspect]
     Indication: AKATHISIA
  5. ZIPRASIDONE HYDROCHLORIDE [Suspect]
  6. CLOZAPINE [Suspect]
  7. ARIPIPRAZOLE [Suspect]
  8. BENZTROPINE [Suspect]
     Indication: AKATHISIA
  9. BENZTROPINE [Suspect]
     Indication: MUSCULOSKELETAL STIFFNESS
  10. BENZTROPINE [Suspect]
     Indication: SALIVARY HYPERSECRETION
  11. HALOPERIDOL [Suspect]
     Indication: PSYCHOTIC DISORDER
  12. HALOPERIDOL [Suspect]
     Indication: AGITATION
  13. CLONAZEPAM [Suspect]
     Indication: PSYCHOTIC DISORDER
  14. CLONAZEPAM [Suspect]
     Indication: AGITATION

REACTIONS (17)
  - Psychiatric decompensation [None]
  - Hyperprolactinaemia [None]
  - Drug ineffective [None]
  - Schizophrenia, disorganised type [None]
  - Paranoia [None]
  - Agitation [None]
  - Homicidal ideation [None]
  - Sedation [None]
  - Salivary hypersecretion [None]
  - Tachycardia [None]
  - Electrocardiogram QT prolonged [None]
  - Blood creatine phosphokinase increased [None]
  - Electrocardiogram abnormal [None]
  - Aggression [None]
  - Left ventricular hypertrophy [None]
  - Left ventricular dysfunction [None]
  - Drug level above therapeutic [None]
